FAERS Safety Report 8298223-7 (Version None)
Quarter: 2012Q2

REPORT INFORMATION
  Report Type: 
  Country: None (occurrence: None)
  Receive Date: 20120419
  Receipt Date: 20120227
  Transmission Date: 20120825
  Serious: No
  Sender: FDA-Public Use
  Company Number: US-BRISTOL-MYERS SQUIBB COMPANY-16421380

PATIENT
  Age: 80 Year
  Sex: Female

DRUGS (2)
  1. VOLTAREN [Concomitant]
  2. YERVOY [Suspect]
     Dosage: 2ND TREATMENT ON 24FEB2012. 3RD TREATMENT ON 19MAR2012.
     Dates: start: 20120203

REACTIONS (2)
  - NAUSEA [None]
  - COUGH [None]
